FAERS Safety Report 5348521-1 (Version None)
Quarter: 2007Q2

REPORT INFORMATION
  Report Type: 
  Country: None (occurrence: None)
  Receive Date: 20070605
  Receipt Date: 20070528
  Transmission Date: 20071010
  Serious: Yes (Hospitalization)
  Sender: FDA-Public Use
  Company Number: B0472627A

PATIENT
  Age: 39 Year
  Sex: Female

DRUGS (5)
  1. CEFTIN [Suspect]
     Indication: BRONCHITIS
     Dosage: 500 MG / SEE DOSAGE TEXT / ORAL
     Route: 048
  2. DEANXIT [Concomitant]
  3. TRAZODONE HCL [Concomitant]
  4. LORMETAZEPAM [Concomitant]
  5. ASPIRIN [Concomitant]

REACTIONS (4)
  - ANAPHYLACTIC SHOCK [None]
  - ANGIOEDEMA [None]
  - DRUG HYPERSENSITIVITY [None]
  - MYOCARDIAL ISCHAEMIA [None]
